FAERS Safety Report 4310977-0 (Version None)
Quarter: 2004Q1

REPORT INFORMATION
  Report Type: 
  Country: None (occurrence: None)
  Receive Date: 20040304
  Receipt Date: 20040225
  Transmission Date: 20041129
  Serious: Yes (Hospitalization)
  Sender: FDA-Public Use
  Company Number: PHBS2004SE02658

PATIENT
  Age: 73 Year
  Sex: Female

DRUGS (3)
  1. DIOVAN COMP [Suspect]
     Indication: HYPERTENSION
     Route: 048
     Dates: start: 20031121, end: 20031122
  2. TENORMIN [Concomitant]
  3. METFORMIN [Concomitant]

REACTIONS (5)
  - CEREBRAL INFARCTION [None]
  - HEADACHE [None]
  - HYPERTENSION [None]
  - VISION BLURRED [None]
  - VISUAL FIELD DEFECT [None]
